FAERS Safety Report 5027243-0 (Version None)
Quarter: 2006Q2

REPORT INFORMATION
  Report Type: 
  Country: None (occurrence: None)
  Receive Date: 20060501
  Receipt Date: 20060209
  Transmission Date: 20061013
  Serious: No
  Sender: FDA-Public Use
  Company Number: 200610813BWH

PATIENT
  Age: 42 Year
  Sex: Male

DRUGS (8)
  1. NEXAVAR [Suspect]
     Indication: METASTASES TO CENTRAL NERVOUS SYSTEM
     Dosage: 200 MG, BID, ORAL
     Route: 048
     Dates: start: 20060101
  2. NEXAVAR [Suspect]
     Indication: METASTATIC MALIGNANT MELANOMA
     Dosage: 200 MG, BID, ORAL
     Route: 048
     Dates: start: 20060101
  3. SYNTHROID [Concomitant]
  4. KEPPRA [Concomitant]
  5. LORAZEPAM [Concomitant]
  6. FENTANYL [Concomitant]
  7. CARBOPLAXIL [Concomitant]
  8. UNKNOWN CHEMOTHERAPY DRUG [Concomitant]

REACTIONS (2)
  - GENITAL RASH [None]
  - PAIN IN EXTREMITY [None]
